FAERS Safety Report 5962268-X (Version None)
Quarter: 2008Q4

REPORT INFORMATION
  Report Type: 
  Country: None (occurrence: None)
  Receive Date: 20081121
  Receipt Date: 20081114
  Transmission Date: 20090506
  Serious: Yes (Death, Other)
  Sender: FDA-Public Use
  Company Number: DE-ROXANE LABORATORIES, INC.-2008-RO-00232RO

PATIENT
  Age: 53 Year
  Sex: Male

DRUGS (14)
  1. METHOTREXATE [Suspect]
     Indication: RHEUMATOID ARTHRITIS
     Route: 058
  2. LEFLUNOMIDE [Suspect]
     Indication: RHEUMATOID ARTHRITIS
     Dosage: 20MG
  3. RITUXIMAB [Suspect]
     Indication: RHEUMATOID ARTHRITIS
     Route: 042
  4. PREDNISOLONE [Suspect]
     Indication: RHEUMATOID ARTHRITIS
  5. PREDNISOLONE [Suspect]
  6. PIPERACILLIN/SULFABACTAM [Concomitant]
     Indication: HERPES SIMPLEX
  7. PIPERACILLIN/SULFABACTAM [Concomitant]
     Indication: ACINETOBACTER INFECTION
  8. CIPROFLOXACIN [Concomitant]
     Indication: HERPES SIMPLEX
  9. CIPROFLOXACIN [Concomitant]
     Indication: ACINETOBACTER INFECTION
  10. ACYCLOVIR [Concomitant]
     Indication: HERPES SIMPLEX
  11. ACYCLOVIR [Concomitant]
     Indication: ACINETOBACTER INFECTION
  12. VORICONAZOLE [Concomitant]
     Indication: HERPES SIMPLEX
  13. VORICONAZOLE [Concomitant]
     Indication: ACINETOBACTER INFECTION
  14. COTRIMOXAZOLE [Concomitant]
     Indication: PNEUMOCYSTIS JIROVECI PNEUMONIA

REACTIONS (6)
  - ACINETOBACTER INFECTION [None]
  - DRUG INEFFECTIVE [None]
  - HERPES SIMPLEX [None]
  - MULTI-ORGAN FAILURE [None]
  - OROPHARYNGEAL CANDIDIASIS [None]
  - PNEUMOCYSTIS JIROVECI PNEUMONIA [None]
